FAERS Safety Report 15426362 (Version 1)
Quarter: 2018Q3

REPORT INFORMATION
  Report Type: Spontaneous
  Country: US (occurrence: US)
  Receive Date: 20180925
  Receipt Date: 20180925
  Transmission Date: 20181010
  Serious: No
  Sender: FDA-Public Use
  Company Number: US-INDIVIOR LIMITED-INDV-104386-2017

PATIENT
  Sex: Female

DRUGS (1)
  1. SUBOXONE [Suspect]
     Active Substance: BUPRENORPHINE HYDROCHLORIDE\NALOXONE HYDROCHLORIDE
     Indication: DRUG DEPENDENCE
     Dosage: 12MG, UNK
     Route: 060

REACTIONS (6)
  - Product preparation error [Unknown]
  - Abdominal pain upper [Unknown]
  - Intentional underdose [Unknown]
  - Drug intolerance [Unknown]
  - Eye disorder [Unknown]
  - Malaise [Unknown]
